FAERS Safety Report 7296012-3 (Version None)
Quarter: 2011Q1

REPORT INFORMATION
  Report Type: 
  Country: None (occurrence: None)
  Receive Date: 20110216
  Receipt Date: 20101115
  Transmission Date: 20110831
  Serious: No
  Sender: FDA-Public Use
  Company Number: US-ABBOTT-10P-163-0685267-00

PATIENT
  Sex: Female
  Weight: 86.26 kg

DRUGS (6)
  1. DIOVAN [Concomitant]
     Indication: PRODUCT USED FOR UNKNOWN INDICATION
     Dosage: 80/12.5
  2. VITAMIN B COMPLEX CAP [Concomitant]
     Indication: PRODUCT USED FOR UNKNOWN INDICATION
  3. SIMCOR [Suspect]
     Indication: BLOOD TRIGLYCERIDES INCREASED
     Dosage: DAILY AT BEDTIME
     Dates: start: 20101101
  4. MULTI-VITAMIN [Concomitant]
     Indication: PRODUCT USED FOR UNKNOWN INDICATION
  5. SIMCOR [Suspect]
     Indication: HIGH DENSITY LIPOPROTEIN DECREASED
  6. ASPIRIN [Concomitant]
     Indication: PRODUCT USED FOR UNKNOWN INDICATION
     Dosage: DAILY AT BEDTIME

REACTIONS (3)
  - MOUTH ULCERATION [None]
  - TONGUE ULCERATION [None]
  - GLOSSODYNIA [None]
